FAERS Safety Report 8308512-5 (Version None)
Quarter: 2012Q2

REPORT INFORMATION
  Report Type: 
  Country: None (occurrence: None)
  Receive Date: 20120424
  Receipt Date: 20120419
  Transmission Date: 20120825
  Serious: Yes (Other)
  Sender: FDA-Public Use
  Company Number: BR-ABBOTT-12P-020-0924947-00

PATIENT
  Sex: Female
  Weight: 68 kg

DRUGS (11)
  1. ENBREL [Suspect]
     Indication: ARTHRITIS
     Dosage: WEEKLY, ON FRIDAYS
     Route: 058
     Dates: start: 20120301
  2. PREDNISONE TAB [Concomitant]
     Indication: ARTHRITIS
     Dates: start: 20070101
  3. PREDNISONE TAB [Concomitant]
     Indication: PAIN
  4. NIMESULIDE [Concomitant]
     Indication: PAIN
  5. IBUPROFEN [Concomitant]
     Indication: ARTHRITIS
     Dosage: 2 TIMES/DAY, AT 7 AM AND 7 PM
     Dates: start: 20111001
  6. LEFLUNOMIDE [Concomitant]
     Indication: ARTHRITIS
     Dosage: DAILY AT 7PM
     Dates: start: 20090101
  7. DEFLAZACORT [Concomitant]
     Indication: PAIN
     Dates: start: 20111001
  8. NIMESULIDE [Concomitant]
     Indication: ARTHRITIS
     Dates: start: 20110101
  9. HUMIRA [Suspect]
     Indication: RHEUMATOID ARTHRITIS
     Route: 058
     Dates: start: 20100701, end: 20120301
  10. IBUPROFEN [Concomitant]
     Indication: PAIN
  11. ATENOLOL [Concomitant]
     Indication: HYPERTENSION
     Dosage: DAILY, 50 MG/12.5 MG
     Dates: start: 20070101

REACTIONS (4)
  - OSTEOARTHRITIS [None]
  - WEIGHT INCREASED [None]
  - DRUG INEFFECTIVE [None]
  - ARTHRITIS [None]
